FAERS Safety Report 16226545 (Version 1)
Quarter: 2019Q2

REPORT INFORMATION
  Report Type: Spontaneous
  Country: US (occurrence: US)
  Receive Date: 20190423
  Receipt Date: 20190423
  Transmission Date: 20190711
  Serious: No
  Sender: FDA-Public Use
  Company Number: US-TEVA-2019-US-1039402

PATIENT
  Age: 30 Year
  Sex: Female

DRUGS (1)
  1. TOBRAMYCIN  INHALATION SOLUTION [Suspect]
     Active Substance: TOBRAMYCIN
     Indication: CYSTIC FIBROSIS
     Dosage: USING THIS PRODUCT FOR 10 TO 15 YEARS
     Route: 065
     Dates: start: 2004

REACTIONS (1)
  - Acne [Recovered/Resolved]
